FAERS Safety Report 9783183 (Version 1)
Quarter: 2013Q4

REPORT INFORMATION
  Report Type: Spontaneous
  Country: US (occurrence: None)
  Receive Date: 20131223
  Receipt Date: 20131223
  Transmission Date: 20140711
  Serious: Yes (Other)
  Sender: FDA-Public Use
  Company Number: EUS-2012-00004

PATIENT
  Age: 13 Year
  Sex: Male

DRUGS (9)
  1. ERWINASE (ASPARAGINASE) [Suspect]
     Indication: ACUTE LYMPHOCYTIC LEUKAEMIA
     Dosage: 09,12,14,16,19 AND 21 SEP 2011)
     Route: 030
     Dates: start: 20110909
  2. BACTRIM [Concomitant]
  3. CEPHALEXIN [Concomitant]
  4. DEXAMETHASONE [Concomitant]
  5. RANITIDINE [Concomitant]
  6. EMLA [Concomitant]
  7. GLYCOLAX [Concomitant]
  8. SENNA [Concomitant]
  9. ZOFRAN [Concomitant]

REACTIONS (5)
  - Stomatitis [None]
  - Hypersensitivity [None]
  - Cough [None]
  - Wheezing [None]
  - Bronchospasm [None]
